FAERS Safety Report 8859915 (Version 3)
Quarter: 2012Q4

REPORT INFORMATION
  Report Type: 
  Country: JO (occurrence: JO)
  Receive Date: 20121025
  Receipt Date: 20121123
  Transmission Date: 20130627
  Serious: Yes (Life-Threatening, Hospitalization, Other)
  Sender: FDA-Public Use
  Company Number: JO-ABBOTT-12P-088-0999189-00

PATIENT
  Age: 12 Year
  Sex: Female
  Weight: 25 kg

DRUGS (7)
  1. HUMIRA [Suspect]
     Indication: JUVENILE ARTHRITIS
     Dosage: 4 doses in 8 weeks
     Route: 058
     Dates: start: 20120814, end: 20121015
  2. PREDNISOLONE [Concomitant]
     Indication: PRODUCT USED FOR UNKNOWN INDICATION
     Dosage: 10 mg
     Dates: start: 200709, end: 201111
  3. METHOTREXATE [Concomitant]
     Indication: PRODUCT USED FOR UNKNOWN INDICATION
     Dates: start: 200806, end: 201210
  4. INH [Concomitant]
     Indication: PRODUCT USED FOR UNKNOWN INDICATION
     Dates: start: 201201, end: 201210
  5. RIFAPILOIN [Concomitant]
     Indication: PRODUCT USED FOR UNKNOWN INDICATION
     Dates: start: 201201, end: 201206
  6. ETHOUMITOL [Concomitant]
     Indication: PRODUCT USED FOR UNKNOWN INDICATION
     Dates: start: 201201, end: 201206
  7. KLACID [Concomitant]
     Indication: PRODUCT USED FOR UNKNOWN INDICATION
     Dates: start: 201101, end: 201206

REACTIONS (5)
  - Craniopharyngioma [Unknown]
  - Headache [Unknown]
  - Eye pain [Unknown]
  - Vision blurred [Unknown]
  - Fatigue [Unknown]
